FAERS Safety Report 14684610 (Version 1)
Quarter: 2018Q1

REPORT INFORMATION
  Report Type: Spontaneous
  Country: JP (occurrence: JP)
  Receive Date: 20180327
  Receipt Date: 20180327
  Transmission Date: 20180509
  Serious: Yes (Hospitalization, Other)
  Sender: FDA-Public Use
  Company Number: JP-PFIZER INC-2018120338

PATIENT
  Age: 80 Year
  Sex: Female

DRUGS (1)
  1. SUNITINIB MALATE. [Suspect]
     Active Substance: SUNITINIB MALATE
     Indication: RENAL CELL CARCINOMA
     Dosage: 37.5 MG DAILY, 3 WEEKS ON AND 2 WEEKS OFF
     Route: 048

REACTIONS (3)
  - Platelet count decreased [Recovering/Resolving]
  - Malaise [Recovered/Resolved]
  - Decreased appetite [Unknown]
